FAERS Safety Report 17929885 (Version 1)
Quarter: 2020Q2

REPORT INFORMATION
  Report Type: Spontaneous
  Country: AF (occurrence: AF)
  Receive Date: 20200623
  Receipt Date: 20200623
  Transmission Date: 20200714
  Serious: Yes (Death, Hospitalization)
  Sender: FDA-Public Use
  Company Number: None

PATIENT
  Age: 52 Year
  Sex: Male

DRUGS (16)
  1. QUETIAPINE 400MG [Concomitant]
     Active Substance: QUETIAPINE
  2. BUPROPION XL 300MG [Concomitant]
     Active Substance: BUPROPION
  3. LISINOPRIL 10MG [Concomitant]
     Active Substance: LISINOPRIL
  4. GABAPENTIN 600MG [Concomitant]
     Active Substance: GABAPENTIN
  5. IBUPROFEN 800MG [Concomitant]
     Active Substance: IBUPROFEN
  6. QUETIAPINE 100MG [Concomitant]
     Active Substance: QUETIAPINE
  7. POTASSIUM CHLORIDE 20MEQ [Concomitant]
     Active Substance: POTASSIUM CHLORIDE
  8. ACYCLOVIR 400MG [Concomitant]
     Active Substance: ACYCLOVIR
  9. MEGESTROL ACETATE 40MG/ML [Concomitant]
     Active Substance: MEGESTROL ACETATE
  10. ISENTRESS [Suspect]
     Active Substance: RALTEGRAVIR POTASSIUM
     Indication: HIV INFECTION
     Route: 048
  11. METFORMIN [Concomitant]
     Active Substance: METFORMIN HYDROCHLORIDE
  12. DOCUSATE SODIUM 100MG [Concomitant]
     Active Substance: DOCUSATE SODIUM
  13. MORPHINE SULF 30MG ER [Concomitant]
  14. TRUVADA [Suspect]
     Active Substance: EMTRICITABINE\TENOFOVIR DISOPROXIL FUMARATE
     Indication: HIV INFECTION
     Route: 048
  15. ASPIRIN 81MG [Concomitant]
     Active Substance: ASPIRIN
  16. LACTULOSE10MG/15ML [Concomitant]

REACTIONS (1)
  - Rectal cancer [None]

NARRATIVE: CASE EVENT DATE: 20200620
